FAERS Safety Report 8338391-1 (Version None)
Quarter: 2012Q2

REPORT INFORMATION
  Report Type: 
  Country: None (occurrence: None)
  Receive Date: 20120504
  Receipt Date: 20120427
  Transmission Date: 20120825
  Serious: Yes (Hospitalization, Other)
  Sender: FDA-Public Use
  Company Number: AU-B.I. PHARMACEUTICALS,INC./RIDGEFIELD-2012-AU-00160AU

PATIENT
  Sex: Male

DRUGS (4)
  1. PRADAXA [Suspect]
     Indication: ATRIAL FIBRILLATION
     Dosage: 300 MG
     Dates: end: 20111101
  2. ATORVASTATIN CALCIUM [Concomitant]
     Dates: start: 20101210
  3. FLECAINIDE ACETATE [Concomitant]
     Dosage: 200 MG
     Dates: start: 20101210
  4. THIAMINE HCL [Concomitant]

REACTIONS (3)
  - BASAL GANGLIA STROKE [None]
  - HAEMORRHAGE INTRACRANIAL [None]
  - FALL [None]
